FAERS Safety Report 7619613-9 (Version None)
Quarter: 2011Q3

REPORT INFORMATION
  Report Type: 
  Country: None (occurrence: None)
  Receive Date: 20110719
  Receipt Date: 20091011
  Transmission Date: 20111222
  Serious: Yes (Death, Other)
  Sender: FDA-Public Use
  Company Number: US-BAYER-200936148NA

PATIENT
  Age: 72 Year
  Sex: Female
  Weight: 58.503 kg

DRUGS (21)
  1. VYTORIN [Concomitant]
     Dosage: 10-20MG
     Route: 048
  2. METOPROLOL TARTRATE [Concomitant]
     Dosage: 25MG
     Route: 048
  3. PLATELETS [Concomitant]
     Dosage: UNK
     Dates: start: 20070918
  4. COZAAR [Concomitant]
     Dosage: 100MG
     Route: 048
  5. FENTANYL-100 [Concomitant]
     Dosage: UNK
     Route: 042
     Dates: start: 20070918, end: 20070918
  6. NITROGLYCERIN [Concomitant]
     Dosage: TITRATED
     Route: 042
     Dates: start: 20070918, end: 20070918
  7. HEPARIN [Concomitant]
     Dosage: 20,000 UNITS IRRIGATION
     Dates: start: 20070918, end: 20070918
  8. HEPARIN [Concomitant]
     Route: 042
  9. FRESH FROZEN PLASMA [Concomitant]
     Dosage: UNK
     Dates: start: 20070918
  10. ACETYLSALICYLIC ACID SRT [Concomitant]
     Dosage: 81MG
     Route: 048
  11. VERAPAMIL [Concomitant]
     Dosage: 240MG
     Route: 048
  12. TRASYLOL [Suspect]
     Dosage: LOADING DOSE 200ML, FOLLOWED BY 50ML/HR INFUSION
  13. RED BLOOD CELLS [Concomitant]
     Dosage: UNK
     Dates: start: 20070918
  14. CRYOPRECIPITATES [Concomitant]
     Dosage: UNK
     Dates: start: 20070918
  15. HYDROCHLOROTHIAZIDE [Concomitant]
     Dosage: 50MG
     Route: 048
  16. TRASYLOL [Suspect]
     Indication: PRODUCT USED FOR UNKNOWN INDICATION
     Dosage: TEST DOSE - 200 ML PUMP PRIME DOSE
     Route: 042
     Dates: start: 20070918, end: 20070918
  17. PROTAMINE SULFATE [Concomitant]
     Dosage: 150MG
     Route: 042
     Dates: start: 20070918, end: 20070918
  18. MANNITOL [Concomitant]
     Dosage: 12.5GM PUMP PRIME
     Dates: start: 20070918, end: 20070918
  19. PLAVIX [Concomitant]
     Dosage: 75MG
     Route: 048
  20. HEPARIN [Concomitant]
     Dosage: 10,000 UNITS PUMP PRIME
     Dates: start: 20070918, end: 20070918
  21. ALBUMIN (HUMAN) [Concomitant]
     Dosage: 1000ML
     Route: 042
     Dates: start: 20070918, end: 20070918

REACTIONS (14)
  - ANXIETY [None]
  - PAIN [None]
  - INJURY [None]
  - RENAL IMPAIRMENT [None]
  - DEATH [None]
  - UNEVALUABLE EVENT [None]
  - EMOTIONAL DISTRESS [None]
  - STRESS [None]
  - FEAR [None]
  - MULTI-ORGAN FAILURE [None]
  - ANHEDONIA [None]
  - DEPRESSION [None]
  - RENAL INJURY [None]
  - RENAL FAILURE [None]
